FAERS Safety Report 5838638-7 (Version None)
Quarter: 2008Q3

REPORT INFORMATION
  Report Type: 
  Country: None (occurrence: None)
  Receive Date: 20080808
  Receipt Date: 20080711
  Transmission Date: 20090109
  Serious: No
  Sender: FDA-Public Use
  Company Number: A0737204A

PATIENT
  Age: 72 Year
  Sex: Female

DRUGS (4)
  1. ALTABAX [Suspect]
     Route: 061
     Dates: start: 20080501
  2. AVAPRO [Concomitant]
  3. INDAPAMID [Concomitant]
  4. TRICOR [Concomitant]

REACTIONS (1)
  - DRUG INEFFECTIVE [None]
